FAERS Safety Report 10925487 (Version 1)
Quarter: 2015Q1

REPORT INFORMATION
  Report Type: Spontaneous
  Country: JP (occurrence: None)
  Receive Date: 20150313
  Receipt Date: 20150313
  Transmission Date: 20150721
  Serious: Yes (Other)
  Sender: FDA-Public Use
  Company Number: BD-2015-0228

PATIENT

DRUGS (1)
  1. MORPHINE SULFATE (MORPHINE SULFATE) INJECTION [Suspect]
     Active Substance: MORPHINE SULFATE
     Indication: DYSPNOEA

REACTIONS (1)
  - Respiratory distress [None]
